FAERS Safety Report 16323658 (Version 1)
Quarter: 2019Q2

REPORT INFORMATION
  Report Type: Spontaneous
  Country: FR (occurrence: FR)
  Receive Date: 20190517
  Receipt Date: 20190517
  Transmission Date: 20190711
  Serious: Yes (Hospitalization)
  Sender: FDA-Public Use
  Company Number: FR-BIOVITRUM-2019FR1063

PATIENT
  Age: 62 Year
  Sex: Female
  Weight: 41 kg

DRUGS (3)
  1. MYAMBUTOL 400 MG,  DIVISIBLE COATED TABLET [Concomitant]
     Indication: ANTIBIOTIC PROPHYLAXIS
     Dates: start: 20190323, end: 20190414
  2. KINERET [Suspect]
     Active Substance: ANAKINRA
     Indication: STILL^S DISEASE
     Route: 058
     Dates: start: 20190404, end: 20190414
  3. RIFATER, COATED TABLET [Concomitant]
     Indication: ANTIBIOTIC PROPHYLAXIS
     Dates: start: 20190323, end: 20190414

REACTIONS (2)
  - Hepatocellular injury [Recovered/Resolved]
  - Off label use [Recovered/Resolved]

NARRATIVE: CASE EVENT DATE: 20190414
